FAERS Safety Report 10278671 (Version 1)
Quarter: 2014Q3

REPORT INFORMATION
  Report Type: Spontaneous
  Country: US (occurrence: US)
  Receive Date: 20140704
  Receipt Date: 20140704
  Transmission Date: 20150326
  Serious: Yes (Other)
  Sender: FDA-Public Use
  Company Number: US-ASTRAZENECA-2014SE46985

PATIENT
  Age: 35 Year
  Sex: Female

DRUGS (7)
  1. SEROQUEL [Suspect]
     Active Substance: QUETIAPINE FUMARATE
     Indication: ANXIETY
     Route: 048
     Dates: start: 20140423, end: 20140509
  2. PROZAC [Concomitant]
     Active Substance: FLUOXETINE HYDROCHLORIDE
     Dosage: UNK UNK
  3. SEROQUEL [Suspect]
     Active Substance: QUETIAPINE FUMARATE
     Indication: DEPRESSION
     Route: 048
     Dates: start: 20140423, end: 20140509
  4. SEROQUEL [Suspect]
     Active Substance: QUETIAPINE FUMARATE
     Indication: POST-TRAUMATIC STRESS DISORDER
     Route: 048
     Dates: start: 20140423, end: 20140509
  5. RITALIN [Concomitant]
     Active Substance: METHYLPHENIDATE HYDROCHLORIDE
     Dosage: UNK UNK
  6. AMBIEN [Concomitant]
     Active Substance: ZOLPIDEM TARTRATE
     Dosage: UNK UNK
  7. INTERMEZZO [Concomitant]
     Active Substance: ZOLPIDEM TARTRATE
     Dosage: UNK UNK

REACTIONS (4)
  - Muscle spasms [Unknown]
  - Oedema [Unknown]
  - Off label use [Unknown]
  - Anuria [Unknown]

NARRATIVE: CASE EVENT DATE: 20140423
